FAERS Safety Report 24552962 (Version 2)
Quarter: 2025Q3

REPORT INFORMATION
  Report Type: Report from Study
  Country: GB (occurrence: GB)
  Receive Date: 20241027
  Receipt Date: 20250709
  Transmission Date: 20251021
  Serious: Yes (Hospitalization, Other)
  Sender: ABBVIE
  Company Number: GB-ABBVIE-5972992

PATIENT
  Age: 38 Year
  Sex: Female
  Weight: 72 kg

DRUGS (7)
  1. SKYRIZI [Suspect]
     Active Substance: RISANKIZUMAB-RZAA
     Indication: Psoriasis
     Route: 058
     Dates: start: 20221015
  2. BUPRENORPHINE [Concomitant]
     Active Substance: BUPRENORPHINE
     Indication: Product used for unknown indication
     Dates: start: 20230701, end: 20240101
  3. BECLOMETHASONE\FORMOTEROL [Concomitant]
     Active Substance: BECLOMETHASONE\FORMOTEROL
     Indication: Product used for unknown indication
     Dates: start: 20210301
  4. TIOTROPIUM [Concomitant]
     Active Substance: TIOTROPIUM
     Indication: Product used for unknown indication
     Dates: start: 20220801
  5. TIOTROPIUM [Concomitant]
     Active Substance: TIOTROPIUM
     Indication: Product used for unknown indication
     Dates: start: 20220801
  6. TRANEXAMIC ACID [Concomitant]
     Active Substance: TRANEXAMIC ACID
     Indication: Product used for unknown indication
     Dates: start: 20240501, end: 20240801
  7. TRANEXAMIC ACID [Concomitant]
     Active Substance: TRANEXAMIC ACID
     Indication: Product used for unknown indication
     Dates: start: 20240501, end: 20240801

REACTIONS (8)
  - Haemorrhage [Recovered/Resolved]
  - Psoriasis [Unknown]
  - COVID-19 [Unknown]
  - Maternal exposure during pregnancy [Unknown]
  - Caesarean section [Unknown]
  - Live birth [Unknown]
  - Foetal malposition [Unknown]
  - Postpartum haemorrhage [Unknown]

NARRATIVE: CASE EVENT DATE: 20220215
